FAERS Safety Report 5818879-5 (Version None)
Quarter: 2008Q3

REPORT INFORMATION
  Report Type: 
  Country: None (occurrence: None)
  Receive Date: 20080718
  Receipt Date: 20080702
  Transmission Date: 20090109
  Serious: Yes (Life-Threatening, Other)
  Sender: FDA-Public Use
  Company Number: 2008SI006630

PATIENT
  Age: 60 Year
  Sex: Female
  Weight: 93.8946 kg

DRUGS (10)
  1. PHOSPHOSODA FLAVOR NOT SPECIFIED [Suspect]
     Indication: HYSTERECTOMY
     Dosage: PO
     Dates: start: 20061101, end: 20061101
  2. AMLODIPINE [Concomitant]
  3. FUROSEMIDE [Concomitant]
  4. METOPROLOL [Concomitant]
  5. LISINOPRIL [Concomitant]
  6. ATORVASTATIN CALCIUM [Concomitant]
  7. LANTUS [Concomitant]
  8. CYANOCOBALAMIN [Concomitant]
  9. ACETYLASLICLIC ACID [Concomitant]
  10. NAPROXEN [Concomitant]

REACTIONS (5)
  - CHEST PAIN [None]
  - INTERCAPILLARY GLOMERULOSCLEROSIS [None]
  - NEPHROPATHY [None]
  - PULMONARY OEDEMA [None]
  - RENAL FAILURE ACUTE [None]
